FAERS Safety Report 12980756 (Version 1)
Quarter: 2016Q4

REPORT INFORMATION
  Report Type: Report from Study
  Country: None (occurrence: CO)
  Receive Date: 20161128
  Receipt Date: 20161128
  Transmission Date: 20170207
  Serious: Yes (Hospitalization)
  Sender: FDA-Public Use
  Company Number: CO-ABBVIE-16P-036-1792898-00

PATIENT
  Age: 32 Year
  Sex: Female

DRUGS (1)
  1. ZEMPLAR [Suspect]
     Active Substance: PARICALCITOL
     Indication: HYPERPARATHYROIDISM SECONDARY
     Route: 048
     Dates: start: 20141024, end: 20160914

REACTIONS (2)
  - Seizure [Not Recovered/Not Resolved]
  - Neurological symptom [Not Recovered/Not Resolved]

NARRATIVE: CASE EVENT DATE: 20161110
